FAERS Safety Report 8496695-6 (Version None)
Quarter: 2012Q2

REPORT INFORMATION
  Report Type: 
  Country: None (occurrence: None)
  Receive Date: 20120629
  Receipt Date: 20120625
  Transmission Date: 20120825
  Serious: Yes (Hospitalization)
  Sender: FDA-Public Use
  Company Number: VAL_00778_2012

PATIENT
  Age: 73 Year
  Sex: Female

DRUGS (1)
  1. ROCALTROL [Suspect]
     Indication: HYPOGLYCAEMIA
     Dosage: (0.5  ?G BID ORAL)
     Route: 048
     Dates: start: 20101020, end: 20101101

REACTIONS (1)
  - HYPERCALCAEMIA [None]
